FAERS Safety Report 7818446-8 (Version None)
Quarter: 2011Q4

REPORT INFORMATION
  Report Type: 
  Country: None (occurrence: None)
  Receive Date: 20111017
  Receipt Date: 20111011
  Transmission Date: 20120403
  Serious: Yes (Other)
  Sender: FDA-Public Use
  Company Number: US-AMGEN-USASP2011051326

PATIENT
  Age: 73 Year
  Sex: Male

DRUGS (11)
  1. IVIGLOB-EX [Concomitant]
     Indication: IDIOPATHIC THROMBOCYTOPENIC PURPURA
  2. XANAX [Concomitant]
     Dosage: 0.25 MG, UNK
  3. MULTIVITAMIN                       /00097801/ [Concomitant]
  4. PROMACTA [Concomitant]
     Indication: IDIOPATHIC THROMBOCYTOPENIC PURPURA
     Dosage: 50 MG, UNK
  5. WINRHO [Concomitant]
     Indication: IDIOPATHIC THROMBOCYTOPENIC PURPURA
     Dosage: UNK UNK, Q3WK
  6. OMEPRAZOLE [Concomitant]
     Dosage: 20 MG, UNK
  7. COUMADIN [Concomitant]
     Indication: DEEP VEIN THROMBOSIS
  8. ATIVAN [Concomitant]
     Dosage: 1 MG, UNK
  9. NORVASC [Concomitant]
     Dosage: 2.5 MG, UNK
  10. NPLATE [Suspect]
     Indication: IDIOPATHIC THROMBOCYTOPENIC PURPURA
     Dosage: 4.1 MUG/KG, QWK
     Dates: start: 20100115, end: 20110531
  11. HYZAAR [Concomitant]

REACTIONS (17)
  - MALAISE [None]
  - ASTHENIA [None]
  - WEIGHT DECREASED [None]
  - BLOOD PRESSURE INCREASED [None]
  - INFLUENZA [None]
  - DIZZINESS [None]
  - THERAPEUTIC RESPONSE DECREASED [None]
  - ANAEMIA [None]
  - CHILLS [None]
  - HICCUPS [None]
  - VISION BLURRED [None]
  - ABDOMINAL PAIN UPPER [None]
  - DYSPNOEA [None]
  - DECREASED APPETITE [None]
  - PLATELET COUNT DECREASED [None]
  - EPISTAXIS [None]
  - HEADACHE [None]
